FAERS Safety Report 25728194 (Version 4)
Quarter: 2025Q3

REPORT INFORMATION
  Report Type: Spontaneous
  Country: US (occurrence: US)
  Receive Date: 20250826
  Receipt Date: 20250924
  Transmission Date: 20251021
  Serious: No
  Sender: BIOGEN
  Company Number: US-BIOGEN-2025BI01319453

PATIENT
  Sex: Female

DRUGS (2)
  1. VUMERITY [Suspect]
     Active Substance: DIROXIMEL FUMARATE
     Indication: Multiple sclerosis
     Dosage: START DATE ALSO REPORTED AS: 30-JUL-2025, 31-JUL-2025?STOP DATE ALSO REPORTED AS 06-AUG-2025
     Route: 050
     Dates: start: 20250727, end: 20250802
  2. VUMERITY [Suspect]
     Active Substance: DIROXIMEL FUMARATE
     Dosage: START DATE ALSO REPORTED AS: 07-AUG-2025
     Route: 050
     Dates: start: 20250802

REACTIONS (11)
  - Gastrooesophageal reflux disease [Unknown]
  - Weight increased [Unknown]
  - Chest pain [Recovered/Resolved]
  - Rash papular [Recovered/Resolved]
  - Flushing [Unknown]
  - Hypersensitivity [Unknown]
  - Pruritus [Recovered/Resolved]
  - Diarrhoea [Recovered/Resolved]
  - Nausea [Recovered/Resolved]
  - Vomiting [Recovered/Resolved]
  - Urticaria [Recovered/Resolved]

NARRATIVE: CASE EVENT DATE: 20250101
